FAERS Safety Report 19901252 (Version 1)
Quarter: 2021Q3

REPORT INFORMATION
  Report Type: Spontaneous
  Country: US (occurrence: US)
  Receive Date: 20210929
  Receipt Date: 20210929
  Transmission Date: 20211014
  Serious: No
  Sender: FDA-Public Use
  Company Number: US-ALLERGAN-2119687US

PATIENT
  Sex: Female
  Weight: 49.9 kg

DRUGS (1)
  1. BUTALBITAL;ASPIRIN;CAFFEINE;CODEINE UNK [Suspect]
     Active Substance: ASPIRIN\BUTALBITAL\CAFFEINE\CODEINE
     Indication: PAIN
     Dosage: UNK
     Dates: start: 202104

REACTIONS (5)
  - Drug hypersensitivity [Recovered/Resolved]
  - Feeling abnormal [Recovered/Resolved]
  - Illness [Recovered/Resolved]
  - Product substitution issue [Unknown]
  - Diarrhoea [Recovered/Resolved]

NARRATIVE: CASE EVENT DATE: 202104
